FAERS Safety Report 21283594 (Version 1)
Quarter: 2022Q3

REPORT INFORMATION
  Report Type: Spontaneous
  Country: US (occurrence: None)
  Receive Date: 20220901
  Receipt Date: 20220901
  Transmission Date: 20221027
  Serious: Yes (Other)
  Sender: FDA-Public Use
  Company Number: None

PATIENT
  Age: 82 Year
  Sex: Female

DRUGS (7)
  1. PROLIA [Suspect]
     Active Substance: DENOSUMAB
     Indication: Senile osteoporosis
     Dosage: INJECT 60 MG (1 ML / ONE SYRINGE) UNDER THE SKIN ( SUBCUTANEOUS INJECTION) EVERY 6 MONTHS?
     Route: 058
     Dates: start: 20190510
  2. PROLIA [Suspect]
     Active Substance: DENOSUMAB
     Dosage: OTHER FREQUENCY : EVERY 6 MONTHS;?
     Route: 011
  3. CRESTOR [Concomitant]
  4. LOSARTAN [Concomitant]
     Active Substance: LOSARTAN
  5. METFORMIN [Concomitant]
     Active Substance: METFORMIN HYDROCHLORIDE
  6. RANITIDINE [Concomitant]
     Active Substance: RANITIDINE
  7. WARFARIN [Concomitant]

REACTIONS (2)
  - Fall [None]
  - Vascular device infection [None]

NARRATIVE: CASE EVENT DATE: 20220812
